FAERS Safety Report 8440069-0 (Version None)
Quarter: 2012Q2

REPORT INFORMATION
  Report Type: 
  Country: None (occurrence: None)
  Receive Date: 20120615
  Receipt Date: 20120605
  Transmission Date: 20120825
  Serious: Yes (Hospitalization, Other)
  Sender: FDA-Public Use
  Company Number: US-ABBOTT-12P-163-0943059-00

PATIENT
  Age: 67 Year
  Sex: Female

DRUGS (35)
  1. MORPHINE [Concomitant]
     Indication: PAIN
  2. OMEPRAZOLE [Concomitant]
     Indication: GASTROOESOPHAGEAL REFLUX DISEASE
  3. DIPHEN ATROP [Concomitant]
     Indication: DIARRHOEA
     Dosage: AS REQUIRED
  4. ZOFRAN [Concomitant]
     Indication: NAUSEA
  5. MULTI-VITAMIN [Concomitant]
     Indication: PRODUCT USED FOR UNKNOWN INDICATION
     Dosage: DAILY
  6. PREDNISONE TAB [Concomitant]
     Indication: PRODUCT USED FOR UNKNOWN INDICATION
     Dosage: DAILY, CURRENTLY ON TAPER
  7. LIDODERM [Concomitant]
     Indication: PAIN
     Dosage: PATCH APPLIED TO ABDOMEN
  8. LOVOXYL [Concomitant]
     Indication: HYPOTHYROIDISM
     Dosage: DAILY
  9. MUPIROCIN [Concomitant]
  10. DICLOF/BACI/BUTIV [Concomitant]
     Indication: PAIN
     Dosage: TO SHOULDERS
  11. ZYRTEC [Concomitant]
     Indication: HYPERSENSITIVITY
     Dosage: DAILY
  12. ZOLPIDEM [Concomitant]
     Indication: INSOMNIA
  13. MAGNESIUM [Concomitant]
     Indication: PRODUCT USED FOR UNKNOWN INDICATION
  14. HYDROCODEINE [Concomitant]
     Indication: ABDOMINAL PAIN UPPER
     Dosage: 5/325MG, AS REQUIRED
  15. GABAPENTIN [Concomitant]
     Indication: BACK DISORDER
     Dosage: DAILY
  16. MUPIROCIN [Concomitant]
     Indication: ECZEMA
  17. VOLTAREN [Concomitant]
     Indication: PAIN
     Dosage: GEL, DAILY TO LEFT SHOULDER
  18. VITAMIN D [Concomitant]
     Indication: PRODUCT USED FOR UNKNOWN INDICATION
  19. ADVAIR DISKUS 100/50 [Concomitant]
     Indication: CHRONIC OBSTRUCTIVE PULMONARY DISEASE
  20. SINGULAIR [Concomitant]
     Indication: ASTHMA
     Dosage: DAILY
  21. ASACOL [Concomitant]
     Indication: PRODUCT USED FOR UNKNOWN INDICATION
  22. AMITRIPTYLINE HCL [Concomitant]
     Indication: DEPRESSION
     Dosage: DAILY
  23. PROBIOTICS [Concomitant]
     Indication: PRODUCT USED FOR UNKNOWN INDICATION
     Dosage: DAILY
  24. MUPIROCIN [Concomitant]
  25. CYCLOBENZAPRINE [Concomitant]
     Indication: MYALGIA
     Dosage: AS REQUIRED
  26. FUROSEMIDE [Concomitant]
     Indication: CHRONIC OBSTRUCTIVE PULMONARY DISEASE
     Dosage: DAILY
  27. ADVAIR DISKUS 100/50 [Concomitant]
     Indication: ASTHMA
  28. HUMIRA [Suspect]
     Indication: CROHN'S DISEASE
  29. DICYCLOMINE [Concomitant]
     Indication: GASTRIC DISORDER
     Dosage: DAILY
  30. MORPHINE [Concomitant]
     Indication: CROHN'S DISEASE
  31. ZOLOFT [Concomitant]
     Indication: ANXIETY
     Dosage: DAILY
  32. HYDROXYZINE [Concomitant]
     Indication: PRURITUS
  33. POTASSIUM ACETATE [Concomitant]
     Indication: PRODUCT USED FOR UNKNOWN INDICATION
     Dosage: DAILY
  34. CALCIUM [Concomitant]
     Indication: PRODUCT USED FOR UNKNOWN INDICATION
     Dosage: DAILY
  35. PROAIR HGA [Concomitant]
     Indication: ASTHMA

REACTIONS (6)
  - DYSPNOEA [None]
  - UPPER RESPIRATORY TRACT INFECTION [None]
  - ABDOMINAL PAIN UPPER [None]
  - CHEST PAIN [None]
  - HEART RATE IRREGULAR [None]
  - CHRONIC OBSTRUCTIVE PULMONARY DISEASE [None]
